FAERS Safety Report 15855448 (Version 1)
Quarter: 2019Q1

REPORT INFORMATION
  Report Type: Spontaneous
  Country: KR (occurrence: KR)
  Receive Date: 20190122
  Receipt Date: 20190122
  Transmission Date: 20190417
  Serious: Yes (Death, Other)
  Sender: FDA-Public Use
  Company Number: KR-JUBILANT PHARMA LTD-2018KR001388

PATIENT
  Age: 46 Year
  Sex: Female

DRUGS (7)
  1. SODIUM IODIDE I-131. [Suspect]
     Active Substance: SODIUM IODIDE I-131
     Indication: FOLLICULAR THYROID CANCER
     Dosage: 200 MCI, SINGLE DOSE
  2. SODIUM IODIDE I-131. [Suspect]
     Active Substance: SODIUM IODIDE I-131
     Indication: METASTASES TO LUNG
     Dosage: 200 MCI, SINGLE DOSE
  3. SODIUM IODIDE I-131. [Suspect]
     Active Substance: SODIUM IODIDE I-131
     Dosage: 200 MCI, SINGLE DOSE
  4. SODIUM IODIDE I-131. [Suspect]
     Active Substance: SODIUM IODIDE I-131
     Dosage: 200 MCI, SINGLE DOSE
  5. SODIUM IODIDE I-131. [Suspect]
     Active Substance: SODIUM IODIDE I-131
     Dosage: 200 MCI, SINGLE DOSE
  6. SODIUM IODIDE I-131. [Suspect]
     Active Substance: SODIUM IODIDE I-131
     Indication: THYROID CANCER METASTATIC
     Dosage: 200 MCI, SINGLE DOSE
  7. SODIUM IODIDE I-131. [Suspect]
     Active Substance: SODIUM IODIDE I-131
     Dosage: 200 MCI, SINGLE DOSE

REACTIONS (3)
  - Pneumonia [Fatal]
  - Second primary malignancy [Not Recovered/Not Resolved]
  - Refractory cytopenia with multilineage dysplasia [Not Recovered/Not Resolved]

NARRATIVE: CASE EVENT DATE: 200504
